FAERS Safety Report 5963732-X (Version None)
Quarter: 2008Q4

REPORT INFORMATION
  Report Type: 
  Country: None (occurrence: None)
  Receive Date: 20081121
  Receipt Date: 20081121
  Transmission Date: 20090506
  Serious: Yes (Disabling, Other)
  Sender: FDA-Public Use
  Company Number: None

PATIENT
  Age: 7 Year
  Sex: Male
  Weight: 22.6799 kg

DRUGS (2)
  1. LACTULOSE [Suspect]
     Indication: CONSTIPATION
     Dosage: 10 CC TWICE A DAY PO
     Route: 048
     Dates: start: 20080915, end: 20081112
  2. LACTULOSE [Suspect]
     Indication: FAECALOMA
     Dosage: 10 CC TWICE A DAY PO
     Route: 048
     Dates: start: 20080915, end: 20081112

REACTIONS (6)
  - ANGER [None]
  - EMOTIONAL DISORDER [None]
  - FAECES DISCOLOURED [None]
  - FOOD CRAVING [None]
  - LETHARGY [None]
  - MOOD SWINGS [None]
